FAERS Safety Report 4750917-3 (Version None)
Quarter: 2005Q3

REPORT INFORMATION
  Report Type: 
  Country: None (occurrence: None)
  Receive Date: 20050818
  Receipt Date: 20050809
  Transmission Date: 20060218
  Serious: Yes (Death, Other)
  Sender: FDA-Public Use
  Company Number: 163-20785-05070181

PATIENT
  Age: 62 Year
  Sex: Female

DRUGS (8)
  1. THALOMID [Suspect]
     Indication: MULTIPLE MYELOMA
     Dosage: 200 MG DAILY, ORAL
     Route: 048
     Dates: start: 20040801, end: 20041014
  2. DECADRON [Suspect]
     Indication: MULTIPLE MYELOMA
     Dates: start: 20040801, end: 20041001
  3. ZOMETA [Concomitant]
  4. DOXIL [Concomitant]
  5. VINCRISTINE [Concomitant]
  6. CYTOXAN [Concomitant]
  7. PREDNISONE TAB [Concomitant]
  8. VELCADE [Concomitant]

REACTIONS (8)
  - COAGULOPATHY [None]
  - CONTUSION [None]
  - DISEASE PROGRESSION [None]
  - HAEMATOMA [None]
  - MULTIPLE MYELOMA [None]
  - MYOPATHY STEROID [None]
  - REFUSAL OF TREATMENT BY PATIENT [None]
  - SPINAL COMPRESSION FRACTURE [None]
